FAERS Safety Report 23979863 (Version 1)
Quarter: 2024Q2

REPORT INFORMATION
  Report Type: Spontaneous
  Country: TW (occurrence: TW)
  Receive Date: 20240617
  Receipt Date: 20240617
  Transmission Date: 20240716
  Serious: Yes (Other)
  Sender: FDA-Public Use
  Company Number: TW-MLMSERVICE-20240529-PI081870-00258-1

PATIENT
  Age: 67 Year
  Sex: Male

DRUGS (12)
  1. RISPERDAL [Interacting]
     Active Substance: RISPERIDONE
     Indication: Jealous delusion
     Route: 065
  2. RISPERDAL [Interacting]
     Active Substance: RISPERIDONE
     Dosage: INCREASED TO 2 MG DAILY MAXIMUM
     Route: 065
  3. RISPERDAL [Interacting]
     Active Substance: RISPERIDONE
     Dosage: CROSS TITRATED
     Route: 065
  4. QUETIAPINE [Interacting]
     Active Substance: QUETIAPINE
     Indication: Behaviour disorder
     Route: 065
  5. QUETIAPINE [Interacting]
     Active Substance: QUETIAPINE
     Indication: Euphoric mood
     Dosage: TITRATED UP SLOWLY TO 175 MG IN TOTAL DAILY
     Route: 065
  6. QUETIAPINE [Interacting]
     Active Substance: QUETIAPINE
     Indication: Agitation
     Dosage: BEFORE BED
     Route: 065
  7. QUETIAPINE [Interacting]
     Active Substance: QUETIAPINE
     Dosage: TAPERED DOWN TO 100 MG IN TOTAL DAILY
     Route: 065
  8. PAROXETINE [Interacting]
     Active Substance: PAROXETINE
     Indication: Behaviour disorder
     Route: 065
  9. PAROXETINE [Interacting]
     Active Substance: PAROXETINE
     Route: 065
  10. PAROXETINE [Interacting]
     Active Substance: PAROXETINE
     Route: 065
  11. NALTREXONE [Concomitant]
     Active Substance: NALTREXONE
     Indication: Alcoholic psychosis
  12. NALTREXONE [Concomitant]
     Active Substance: NALTREXONE
     Indication: Alcohol use disorder
     Dosage: LOW-DOSE
     Route: 048

REACTIONS (2)
  - Drug interaction [Recovered/Resolved]
  - Serotonin syndrome [Recovered/Resolved]
